FAERS Safety Report 6157330-5 (Version None)
Quarter: 2009Q2

REPORT INFORMATION
  Report Type: 
  Country: None (occurrence: None)
  Receive Date: 20090416
  Receipt Date: 20090414
  Transmission Date: 20091009
  Serious: Yes (Hospitalization)
  Sender: FDA-Public Use
  Company Number: FR-ASTRAZENECA-2009CG00730

PATIENT
  Age: 9135 Day
  Sex: Male

DRUGS (5)
  1. ENTOCORT EC [Suspect]
     Indication: CROHN'S DISEASE
     Route: 048
     Dates: start: 20081027
  2. NORVIR [Interacting]
     Indication: HIV INFECTION
     Route: 048
     Dates: start: 20090214, end: 20090402
  3. REYATAZ [Interacting]
     Indication: HIV INFECTION
     Route: 048
     Dates: start: 20090214
  4. ISENTRESS [Concomitant]
     Dates: start: 20090214
  5. TRUVADA [Concomitant]

REACTIONS (2)
  - CUSHING'S SYNDROME [None]
  - DRUG INTERACTION [None]
